FAERS Safety Report 10564727 (Version 1)
Quarter: 2014Q4

REPORT INFORMATION
  Report Type: Other
  Country: DE (occurrence: DE)
  Receive Date: 20141105
  Receipt Date: 20141105
  Transmission Date: 20150529
  Serious: Yes (Hospitalization, Congenital Anomaly, Other)
  Sender: FDA-Public Use
  Company Number: DE-SUN PHARMACEUTICAL INDUSTRIES LTD-2014SUN02455

PATIENT

DRUGS (4)
  1. TOPIRAMATE. [Suspect]
     Active Substance: TOPIRAMATE
     Indication: ANXIETY DISORDER
     Dosage: 50 MG/DAY, (DURING 1ST TRIMESTER)
     Route: 064
     Dates: start: 20130324, end: 20131213
  2. VENLAFAXINE HYDROCHLORIDE 37.5MG TABLET [Suspect]
     Active Substance: VENLAFAXINE HYDROCHLORIDE
     Indication: ANXIETY DISORDER
     Dosage: 150 MG/DAY, QD (1 TRIMESTER)
     Route: 064
     Dates: start: 20130324, end: 20131213
  3. ASPIRIN. [Concomitant]
     Active Substance: ASPIRIN
     Indication: PROPHYLAXIS OF ABORTION
     Dosage: DURING 1ST TRIMESTER
     Route: 064
  4. L-THYROXIN [Concomitant]
     Active Substance: LEVOTHYROXINE SODIUM
     Indication: HYPOTHYROIDISM
     Dosage: 75 MCG, QD (DURING THE 1ST TRIMESTER)
     Route: 064
     Dates: start: 20130324, end: 20131213

REACTIONS (10)
  - Neonatal respiratory distress syndrome [Recovered/Resolved]
  - Hypoglycaemia neonatal [Recovered/Resolved]
  - Small for dates baby [Recovering/Resolving]
  - Neonatal hypotension [Recovered/Resolved]
  - Foetal exposure during pregnancy [Unknown]
  - Atrial septal defect [Unknown]
  - Thrombocytopenia neonatal [Recovered/Resolved]
  - Feeding disorder neonatal [Recovering/Resolving]
  - Coagulation disorder neonatal [Recovered/Resolved]
  - Seizure [Unknown]

NARRATIVE: CASE EVENT DATE: 20131213
